FAERS Safety Report 8621874-4 (Version None)
Quarter: 2012Q3

REPORT INFORMATION
  Report Type: 
  Country: None (occurrence: None)
  Receive Date: 20120822
  Receipt Date: 20120822
  Transmission Date: 20120928
  Serious: No
  Sender: FDA-Public Use
  Company Number: None

PATIENT
  Age: 21 Year
  Sex: Female
  Weight: 65.7716 kg

DRUGS (1)
  1. MIRENA [Suspect]

REACTIONS (3)
  - MUSCLE SPASMS [None]
  - HAEMORRHAGE [None]
  - FEELING ABNORMAL [None]
